FAERS Safety Report 20776400 (Version 2)
Quarter: 2022Q2

REPORT INFORMATION
  Report Type: Spontaneous
  Country: US (occurrence: US)
  Receive Date: 20220502
  Receipt Date: 20220513
  Transmission Date: 20220721
  Serious: Yes (Other)
  Sender: FDA-Public Use
  Company Number: US-PFIZER INC-202200626080

PATIENT
  Age: 72 Year
  Sex: Female
  Weight: 58.957 kg

DRUGS (1)
  1. PHENYTOIN SODIUM [Suspect]
     Active Substance: PHENYTOIN SODIUM
     Indication: Focal dyscognitive seizures
     Dosage: UNK

REACTIONS (1)
  - Focal dyscognitive seizures [Recovered/Resolved]
